FAERS Safety Report 4875250-0 (Version None)
Quarter: 2006Q1

REPORT INFORMATION
  Report Type: 
  Country: None (occurrence: None)
  Receive Date: 20060109
  Receipt Date: 20050930
  Transmission Date: 20060701
  Serious: Yes (Hospitalization, Disabling)
  Sender: FDA-Public Use
  Company Number: US-MERCK-0510USA01997

PATIENT
  Age: 75 Year
  Sex: Male
  Weight: 97 kg

DRUGS (6)
  1. VIOXX [Suspect]
     Indication: OSTEOARTHRITIS
     Route: 048
     Dates: start: 19991001, end: 20040501
  2. LOTENSIN [Concomitant]
     Indication: HYPERTENSION
     Route: 065
     Dates: start: 19950101
  3. BENAZEPRIL HYDROCHLORIDE [Concomitant]
     Indication: HYPERTENSION
     Route: 065
     Dates: start: 19950101, end: 20040101
  4. HYTRIN [Concomitant]
     Route: 065
  5. COREG [Concomitant]
     Route: 065
  6. PREVACID [Concomitant]
     Route: 065

REACTIONS (31)
  - ABDOMINAL PAIN UPPER [None]
  - ALCOHOLISM [None]
  - ANAEMIA POSTOPERATIVE [None]
  - ANGINA PECTORIS [None]
  - ARTERIOSCLEROSIS CORONARY ARTERY [None]
  - ARTHROPATHY [None]
  - ATRIAL FIBRILLATION [None]
  - ATRIAL SEPTAL DEFECT [None]
  - BLOOD PRESSURE INCREASED [None]
  - CHEST PAIN [None]
  - COAGULOPATHY [None]
  - COLON ADENOMA [None]
  - CORONARY ARTERY DISEASE [None]
  - COUGH [None]
  - DELIRIUM TREMENS [None]
  - DYSPNOEA [None]
  - FALL [None]
  - FATIGUE [None]
  - HEADACHE [None]
  - HIP ARTHROPLASTY [None]
  - HYPOTENSION [None]
  - LACERATION [None]
  - MYOCARDIAL INFARCTION [None]
  - OEDEMA PERIPHERAL [None]
  - PROSTATISM [None]
  - RASH [None]
  - RENAL FAILURE ACUTE [None]
  - ROTATOR CUFF SYNDROME [None]
  - SECRETION DISCHARGE [None]
  - SINUS ARRHYTHMIA [None]
  - SINUS CONGESTION [None]
